FAERS Safety Report 6441833-X (Version None)
Quarter: 2009Q4

REPORT INFORMATION
  Report Type: 
  Country: None (occurrence: None)
  Receive Date: 20091112
  Receipt Date: 20091104
  Transmission Date: 20100525
  Serious: Yes (Other)
  Sender: FDA-Public Use
  Company Number: 2009SP034896

PATIENT
  Age: 18 Year
  Sex: Female
  Weight: 117.028 kg

DRUGS (1)
  1. IMPLANON [Suspect]
     Indication: DRUG USE FOR UNKNOWN INDICATION
     Dosage: 1 DF
     Dates: start: 20090216, end: 20091103

REACTIONS (3)
  - CONDITION AGGRAVATED [None]
  - MENSTRUATION IRREGULAR [None]
  - PSEUDOCYST [None]
